FAERS Safety Report 16213180 (Version 1)
Quarter: 2019Q2

REPORT INFORMATION
  Report Type: Spontaneous
  Country: US (occurrence: US)
  Receive Date: 20190418
  Receipt Date: 20190418
  Transmission Date: 20190711
  Serious: No
  Sender: FDA-Public Use
  Company Number: US-JNJFOC-20190337146

PATIENT
  Age: 8 Year
  Sex: Male
  Weight: 27.22 kg

DRUGS (1)
  1. RISPERDAL [Suspect]
     Active Substance: RISPERIDONE
     Indication: AUTISM SPECTRUM DISORDER
     Dosage: 0.5ML IN MORNING, 1.5ML IN EVENING
     Route: 048
     Dates: start: 2017

REACTIONS (2)
  - Product dose omission [Unknown]
  - Abnormal behaviour [Not Recovered/Not Resolved]

NARRATIVE: CASE EVENT DATE: 201902
